FAERS Safety Report 6592999-2 (Version None)
Quarter: 2010Q1

REPORT INFORMATION
  Report Type: 
  Country: None (occurrence: None)
  Receive Date: 20100212
  Receipt Date: 20100127
  Transmission Date: 20100710
  Serious: Yes (Hospitalization, Other)
  Sender: FDA-Public Use
  Company Number: CLOF-1000785

PATIENT
  Age: 72 Year
  Sex: Female

DRUGS (2)
  1. EVOLTRA (CLOFARABINE) SOLUTION FOR INFUSION, UNK [Suspect]
     Indication: ACUTE MYELOID LEUKAEMIA
     Dates: start: 20091102, end: 20091106
  2. CO-TRIMOXAZOLE (COTRIMOXAZOLE) UNKNOWN, UNK [Suspect]
     Indication: DRUG USE FOR UNKNOWN INDICATION

REACTIONS (14)
  - ALANINE AMINOTRANSFERASE INCREASED [None]
  - BLOOD ALKALINE PHOSPHATASE INCREASED [None]
  - CHILLS [None]
  - CONDITION AGGRAVATED [None]
  - DIZZINESS [None]
  - HAEMOGLOBIN DECREASED [None]
  - HYPERSENSITIVITY [None]
  - NEUTROPENIC SEPSIS [None]
  - OEDEMA PERIPHERAL [None]
  - PSORIASIS [None]
  - RASH ERYTHEMATOUS [None]
  - SKIN EXFOLIATION [None]
  - SYNCOPE [None]
  - WHITE BLOOD CELL COUNT DECREASED [None]
